FAERS Safety Report 25164481 (Version 2)
Quarter: 2025Q2

REPORT INFORMATION
  Report Type: Spontaneous
  Country: BR (occurrence: BR)
  Receive Date: 20250406
  Receipt Date: 20250417
  Transmission Date: 20250716
  Serious: Yes (Other)
  Sender: IPSEN
  Company Number: BR-IPSEN Group, Research and Development-2025-07959

PATIENT
  Age: 36 Year
  Sex: Female
  Weight: 67 kg

DRUGS (1)
  1. DYSPORT [Suspect]
     Active Substance: ABOBOTULINUMTOXINA
     Indication: Skin wrinkling
     Route: 058
     Dates: start: 20250326, end: 20250326

REACTIONS (6)
  - Corneal lesion [Recovering/Resolving]
  - Visual acuity reduced [Recovering/Resolving]
  - VIth nerve paralysis [Recovered/Resolved with Sequelae]
  - Lagophthalmos [Unknown]
  - Off label use [Unknown]
  - Off label use [Unknown]

NARRATIVE: CASE EVENT DATE: 20250326
